FAERS Safety Report 9451109 (Version 2)
Quarter: 2013Q3

REPORT INFORMATION
  Report Type: Spontaneous
  Country: DE (occurrence: DE)
  Receive Date: 20130809
  Receipt Date: 20130816
  Transmission Date: 20140515
  Serious: Yes (Life-Threatening)
  Sender: FDA-Public Use
  Company Number: DE-PFIZER INC-2013230388

PATIENT
  Age: 70 Year
  Sex: Female
  Weight: 65 kg

DRUGS (3)
  1. FASTJEKT [Suspect]
     Indication: ANAPHYLACTIC SHOCK
     Dosage: UNK
     Dates: start: 20130731
  2. CELESTAMINE [Concomitant]
     Dosage: 25 MG (25 MG,1 IN 1 TOTAL)
     Dates: start: 20130731
  3. FENISTIL [Concomitant]
     Dosage: 40 GTT (40 GTT,1 IN 1 TOTAL)
     Dates: start: 20130731

REACTIONS (3)
  - Drug ineffective [Unknown]
  - Dyspnoea [Recovered/Resolved]
  - Product quality issue [Unknown]
